FAERS Safety Report 17408122 (Version 1)
Quarter: 2020Q1

REPORT INFORMATION
  Report Type: Spontaneous
  Country: US (occurrence: US)
  Receive Date: 20200118
  Receipt Date: 20200118
  Transmission Date: 20200409
  Serious: Yes (Life-Threatening, Hospitalization, Other)
  Sender: FDA-Public Use
  Company Number: None

PATIENT
  Age: 20 Year
  Sex: Female

DRUGS (4)
  1. SERTRALINE [Suspect]
     Active Substance: SERTRALINE HYDROCHLORIDE
     Route: 055
  2. ABILIFY [Suspect]
     Active Substance: ARIPIPRAZOLE
  3. JUUL [DEVICE\NICOTINE] [Suspect]
     Active Substance: DEVICE\NICOTINE
  4. WELLBUTRIN [Suspect]
     Active Substance: BUPROPION HYDROCHLORIDE

REACTIONS (4)
  - General physical health deterioration [None]
  - Vomiting [None]
  - Dehydration [None]
  - Pneumonia [None]
